FAERS Safety Report 7580828-X (Version None)
Quarter: 2011Q2

REPORT INFORMATION
  Report Type: 
  Country: None (occurrence: None)
  Receive Date: 20110629
  Receipt Date: 20110627
  Transmission Date: 20111010
  Serious: Yes (Other)
  Sender: FDA-Public Use
  Company Number: US-PFIZER INC-2011143590

PATIENT
  Age: 49 Year
  Sex: Male

DRUGS (1)
  1. GEODON [Suspect]
     Dosage: 20 MG, 2X/DAY
     Route: 048
     Dates: end: 20110101

REACTIONS (4)
  - VISUAL IMPAIRMENT [None]
  - COORDINATION ABNORMAL [None]
  - BLOOD PRESSURE DECREASED [None]
  - PYREXIA [None]
